FAERS Safety Report 7365661-6 (Version None)
Quarter: 2011Q1

REPORT INFORMATION
  Report Type: 
  Country: None (occurrence: None)
  Receive Date: 20110322
  Receipt Date: 20100817
  Transmission Date: 20110831
  Serious: Yes (Hospitalization, Other)
  Sender: FDA-Public Use
  Company Number: US-BAYER-200942880NA

PATIENT
  Sex: Female
  Weight: 99.773 kg

DRUGS (18)
  1. ADDERALL 10 [Concomitant]
     Dosage: 20 MG, BID
     Route: 048
  2. CORGARD [Concomitant]
  3. YAZ [Suspect]
     Indication: MENSTRUATION IRREGULAR
  4. ADVAIR DISKUS 100/50 [Concomitant]
     Dosage: 1 PUFF(S), UNK
     Route: 048
  5. HYDROCHLOROTHIAZIDE [Concomitant]
  6. ALBUTEROL [Concomitant]
  7. ATIVAN [Concomitant]
  8. YASMIN [Suspect]
     Indication: PREMENSTRUAL SYNDROME
     Dosage: ABOUT DEC 2006 ON OR ABOUT 13 APR 2007
     Route: 048
     Dates: start: 20061201, end: 20070413
  9. YASMIN [Suspect]
     Indication: MENSTRUATION IRREGULAR
  10. NADOLOL [Concomitant]
     Dosage: 40 MG, UNK
     Route: 048
  11. YAZ [Suspect]
  12. YAZ [Suspect]
     Indication: HORMONE THERAPY
  13. YASMIN [Suspect]
     Indication: HORMONE THERAPY
  14. IBUPROFEN [Concomitant]
  15. PROZAC [Concomitant]
     Dosage: 40 MG, QD
     Route: 048
  16. ZOVIRAX [Concomitant]
     Dosage: 400 MG, SIG 1 BID
  17. YAZ [Suspect]
     Indication: PREMENSTRUAL SYNDROME
     Dosage: UNK
     Dates: start: 20061201, end: 20070413
  18. YASMIN [Suspect]

REACTIONS (3)
  - INJURY [None]
  - DEEP VEIN THROMBOSIS [None]
  - PULMONARY EMBOLISM [None]
